FAERS Safety Report 6539766-3 (Version None)
Quarter: 2010Q1

REPORT INFORMATION
  Report Type: 
  Country: None (occurrence: None)
  Receive Date: 20100115
  Receipt Date: 20100106
  Transmission Date: 20100710
  Serious: Yes (Death, Other)
  Sender: FDA-Public Use
  Company Number: US-PFIZER INC-2008154175

PATIENT
  Sex: Female
  Weight: 136 kg

DRUGS (6)
  1. LYRICA [Suspect]
     Indication: NEURALGIA
     Dosage: 50 MG, 1X/DAY
     Route: 048
     Dates: start: 20080101
  2. LYRICA [Suspect]
     Indication: SCIATICA
  3. GLUCOSAMINE [Suspect]
     Dosage: UNK
  4. MAGNESIUM [Suspect]
     Dosage: UNK
  5. FISH OIL [Suspect]
     Dosage: UNK
  6. PRILOSEC [Concomitant]
     Indication: GASTROOESOPHAGEAL REFLUX DISEASE

REACTIONS (2)
  - DEATH [None]
  - DYSPNOEA [None]
